FAERS Safety Report 20961158 (Version 1)
Quarter: 2022Q2

REPORT INFORMATION
  Report Type: Other
  Country: None (occurrence: IN)
  Receive Date: 20220615
  Receipt Date: 20220615
  Transmission Date: 20220721
  Serious: Yes (Other)
  Sender: FDA-Public Use
  Company Number: IN-Ajanta Pharma USA Inc.-2129893

PATIENT
  Age: 60 Year
  Sex: Female

DRUGS (2)
  1. METFORMIN HYDROCHLORIDE [Suspect]
     Active Substance: METFORMIN HYDROCHLORIDE
     Indication: Type 2 diabetes mellitus
  2. SITAGLIPTIN [Suspect]
     Active Substance: SITAGLIPTIN

REACTIONS (1)
  - Skin lesion [Recovered/Resolved]
